FAERS Safety Report 8298850-7 (Version None)
Quarter: 2012Q2

REPORT INFORMATION
  Report Type: 
  Country: None (occurrence: None)
  Receive Date: 20120419
  Receipt Date: 20120404
  Transmission Date: 20120825
  Serious: Yes (Hospitalization, Other)
  Sender: FDA-Public Use
  Company Number: FR-JUTA GMBH-2012-06141

PATIENT
  Age: 9 Year
  Sex: Male

DRUGS (4)
  1. RISPERIDONE [Suspect]
     Indication: AGGRESSION
     Dosage: 2 MG, DAILY
     Route: 065
  2. RISPERIDONE [Suspect]
     Indication: PSYCHOMOTOR HYPERACTIVITY
  3. METHYLPHENIDATE HCL [Suspect]
     Indication: PSYCHOMOTOR HYPERACTIVITY
     Dosage: 20 MG, DAILY
     Route: 065
  4. METHYLPHENIDATE HCL [Suspect]
     Indication: AGGRESSION
     Dosage: 36 MG, DAILY
     Route: 065

REACTIONS (3)
  - DYSTONIA [None]
  - HYPERTHERMIA [None]
  - WITHDRAWAL SYNDROME [None]
